FAERS Safety Report 7044874-7 (Version None)
Quarter: 2010Q4

REPORT INFORMATION
  Report Type: 
  Country: None (occurrence: None)
  Receive Date: 20101014
  Receipt Date: 20101006
  Transmission Date: 20110411
  Serious: Yes (Hospitalization)
  Sender: FDA-Public Use
  Company Number: US-ROXANE LABORATORIES, INC.-2010-RO-01336RO

PATIENT
  Sex: Male

DRUGS (13)
  1. PREDNISONE [Suspect]
     Indication: PROSTATE CANCER
     Dosage: 10 MG
     Route: 048
     Dates: start: 20100713
  2. FUROSEMIDE [Suspect]
     Dosage: 20 MG
     Route: 048
     Dates: start: 20100803
  3. FUROSEMIDE [Suspect]
     Dosage: 60 MG
     Route: 048
  4. FUROSEMIDE [Suspect]
     Dosage: 40 MG
     Route: 048
  5. DASATINIB [Suspect]
     Indication: PROSTATE CANCER
     Dosage: 100 MG
     Route: 048
     Dates: start: 20100714
  6. PLACEBO [Suspect]
     Indication: PROSTATE CANCER
     Route: 048
     Dates: start: 20100714
  7. TAXOTERE [Suspect]
     Indication: PROSTATE CANCER
     Route: 042
     Dates: start: 20100713, end: 20100803
  8. DEXAMETHASONE [Suspect]
     Indication: PROSTATE CANCER
     Route: 042
     Dates: start: 20100713, end: 20100803
  9. ASPIRIN [Concomitant]
     Dates: start: 20050101
  10. FLOMAX [Concomitant]
     Dates: start: 20080101
  11. LEVOTHYROXINE [Concomitant]
     Dates: start: 20050101
  12. LOVAZA [Concomitant]
     Dates: start: 20070101
  13. PLAVIX [Concomitant]
     Dates: start: 20060101

REACTIONS (5)
  - DYSPNOEA [None]
  - LOCALISED OEDEMA [None]
  - OEDEMA GENITAL [None]
  - OEDEMA PERIPHERAL [None]
  - PRODUCTIVE COUGH [None]
